FAERS Safety Report 17131211 (Version 2)
Quarter: 2020Q2

REPORT INFORMATION
  Report Type: Spontaneous
  Country: US (occurrence: US)
  Receive Date: 20191209
  Receipt Date: 20200602
  Transmission Date: 20200713
  Serious: Yes (Other)
  Sender: FDA-Public Use
  Company Number: US-JAZZ-JPI-P-021990

PATIENT
  Age: 25 Year
  Sex: Male
  Weight: 54.55 kg

DRUGS (8)
  1. XYREM [Suspect]
     Active Substance: SODIUM OXYBATE
     Indication: CATAPLEXY
     Dosage: SINGLE (UNSPECIFIED DOSE CHANGE)
     Route: 048
     Dates: start: 2010, end: 20101027
  2. RILUZOLE. [Suspect]
     Active Substance: RILUZOLE
     Dosage: 50 MILLIGRAM
     Route: 048
     Dates: start: 20120812, end: 20120814
  3. XYREM [Suspect]
     Active Substance: SODIUM OXYBATE
     Dosage: 4.5 G, BID
     Route: 048
     Dates: start: 20101028
  4. RILUZOLE. [Suspect]
     Active Substance: RILUZOLE
     Indication: AMYOTROPHIC LATERAL SCLEROSIS
     Dosage: 50 MILLIGRAM
     Route: 048
     Dates: start: 2012, end: 2012
  5. XYREM [Suspect]
     Active Substance: SODIUM OXYBATE
     Indication: NARCOLEPSY
     Dosage: 2.25 G, BID
     Route: 048
     Dates: start: 20100510, end: 2010
  6. XYREM [Suspect]
     Active Substance: SODIUM OXYBATE
     Dosage: 4.5 G, TID
     Route: 048
     Dates: start: 20120614
  7. XYREM [Suspect]
     Active Substance: SODIUM OXYBATE
     Dosage: 4.5 G, TID
     Route: 048
     Dates: end: 20120610
  8. XYREM [Suspect]
     Active Substance: SODIUM OXYBATE
     Dosage: 4.5 G, BID
     Route: 048
     Dates: start: 20120611

REACTIONS (10)
  - Intervertebral disc protrusion [Recovered/Resolved]
  - Back injury [Unknown]
  - Intentional product misuse [Unknown]
  - Back pain [Recovered/Resolved]
  - Gait inability [Not Recovered/Not Resolved]
  - Acne [Not Recovered/Not Resolved]
  - Insomnia [Recovered/Resolved]
  - Diabetes mellitus [Recovering/Resolving]
  - Blood uric acid increased [Not Recovered/Not Resolved]
  - Muscular weakness [Not Recovered/Not Resolved]

NARRATIVE: CASE EVENT DATE: 2012
